FAERS Safety Report 23615914 (Version 1)
Quarter: 2024Q1

REPORT INFORMATION
  Report Type: Spontaneous
  Country: US (occurrence: US)
  Receive Date: 20240311
  Receipt Date: 20240311
  Transmission Date: 20240409
  Serious: No
  Sender: FDA-Public Use
  Company Number: US-GSKCCFUS-Case-01953527_AE-108550

PATIENT
  Age: 25 Year
  Sex: Female

DRUGS (1)
  1. BENLYSTA [Suspect]
     Active Substance: BELIMUMAB
     Indication: Product used for unknown indication
     Dosage: UNK
     Route: 042
     Dates: start: 20240216

REACTIONS (3)
  - Hypersomnia [Unknown]
  - Feeding disorder [Unknown]
  - Headache [Unknown]

NARRATIVE: CASE EVENT DATE: 20240216
